FAERS Safety Report 4613448-7 (Version None)
Quarter: 2005Q1

REPORT INFORMATION
  Report Type: 
  Country: None (occurrence: None)
  Receive Date: 20050317
  Receipt Date: 20050317
  Transmission Date: 20050727
  Serious: No
  Sender: FDA-Public Use
  Company Number: None

PATIENT
  Age: 78 Year
  Sex: Male
  Weight: 65.6 kg

DRUGS (8)
  1. WARFARIN SODIUM [Suspect]
     Indication: ATRIAL FIBRILLATION
     Dosage: PO
     Route: 048
     Dates: end: 20051206
  2. WARFARIN SODIUM [Suspect]
     Indication: ATRIAL FIBRILLATION
     Dosage: 5 MG PO
     Route: 048
     Dates: start: 20051209, end: 20051213
  3. COREG [Concomitant]
  4. HYDROCHLOROTHIAZIDE [Concomitant]
  5. LOPRESSOR [Concomitant]
  6. DIGOXIN [Concomitant]
  7. COLACE [Concomitant]
  8. MOM [Concomitant]

REACTIONS (2)
  - GANGRENE [None]
  - INTERNATIONAL NORMALISED RATIO INCREASED [None]
